FAERS Safety Report 8496836-0 (Version None)
Quarter: 2012Q3

REPORT INFORMATION
  Report Type: 
  Country: None (occurrence: None)
  Receive Date: 20120709
  Receipt Date: 20120628
  Transmission Date: 20120928
  Serious: Yes (Life-Threatening, Hospitalization, Other)
  Sender: FDA-Public Use
  Company Number: FR-BAXTER-2012BAX009623

PATIENT
  Sex: Male

DRUGS (3)
  1. KIOVIG [Suspect]
     Route: 042
     Dates: start: 20120525, end: 20120525
  2. VALACYCLOVIR HYDROCHLORIDE [Concomitant]
     Dosage: DAILY
     Route: 048
  3. KIOVIG [Suspect]
     Route: 042
     Dates: start: 20120214, end: 20120525

REACTIONS (3)
  - HYPERTENSION [None]
  - MULTIPLE MYELOMA [None]
  - ACUTE PULMONARY OEDEMA [None]
